FAERS Safety Report 8138932-3 (Version None)
Quarter: 2012Q1

REPORT INFORMATION
  Report Type: 
  Country: None (occurrence: None)
  Receive Date: 20120215
  Receipt Date: 20120203
  Transmission Date: 20120608
  Serious: Yes (Hospitalization)
  Sender: FDA-Public Use
  Company Number: JP-UCBSA-049680

PATIENT
  Age: 51 Year
  Sex: Female

DRUGS (2)
  1. CLONAZEPAM [Concomitant]
     Dosage: DAILY DOSE: 0.5 MG
     Route: 048
  2. KEPPRA [Suspect]
     Route: 048
     Dates: start: 20111227, end: 20120116

REACTIONS (1)
  - HAEMOGLOBIN DECREASED [None]
